FAERS Safety Report 8008249-6 (Version None)
Quarter: 2011Q4

REPORT INFORMATION
  Report Type: 
  Country: None (occurrence: None)
  Receive Date: 20111227
  Receipt Date: 20111220
  Transmission Date: 20120403
  Serious: Yes (Hospitalization)
  Sender: FDA-Public Use
  Company Number: BR-ROCHE-1023929

PATIENT
  Sex: Male
  Weight: 67 kg

DRUGS (4)
  1. VITAMIN C [Concomitant]
     Indication: ANTIVIRAL PROPHYLAXIS
  2. ISOTRETINOIN [Suspect]
     Route: 065
  3. ISOTRETINOIN [Suspect]
     Indication: ACNE
     Route: 065
     Dates: start: 19880101
  4. ISOTRETINOIN [Suspect]
     Route: 065
     Dates: start: 19960101

REACTIONS (1)
  - HAEMORRHAGE [None]
